FAERS Safety Report 6543687-X (Version None)
Quarter: 2010Q1

REPORT INFORMATION
  Report Type: 
  Country: None (occurrence: None)
  Receive Date: 20100120
  Receipt Date: 20100119
  Transmission Date: 20100710
  Serious: Yes (Hospitalization)
  Sender: FDA-Public Use
  Company Number: GXKR2010DE00883

PATIENT
  Age: 59 Year
  Sex: Male

DRUGS (5)
  1. DOXEPIN HCL [Suspect]
     Dosage: 50-70 MG
     Route: 048
     Dates: start: 19860101, end: 20061116
  2. CITALOPRAM HYDROBROMIDE [Interacting]
     Dosage: 10 MG, QD
     Dates: start: 20061026, end: 20061101
  3. CITALOPRAM HYDROBROMIDE [Interacting]
     Dosage: 20 MG, QD
     Route: 048
     Dates: start: 20061102, end: 20061108
  4. CITALOPRAM HYDROBROMIDE [Interacting]
     Dosage: 30 MG, QD
     Route: 048
     Dates: start: 20061109, end: 20061113
  5. BEZAFIBRATE ^RATIOPHARM^ [Concomitant]

REACTIONS (2)
  - ANXIETY [None]
  - DRUG INTERACTION [None]
